FAERS Safety Report 18951337 (Version 1)
Quarter: 2021Q1

REPORT INFORMATION
  Report Type: Other
  Country: FR (occurrence: FR)
  Receive Date: 20210228
  Receipt Date: 20210228
  Transmission Date: 20210420
  Serious: Yes (Other)
  Sender: FDA-Public Use
  Company Number: FR-ROCHE-2774761

PATIENT

DRUGS (4)
  1. CISPLATIN. [Suspect]
     Active Substance: CISPLATIN
     Indication: ANAL CANCER
     Route: 065
  2. 5?FLUOROURACIL [Suspect]
     Active Substance: FLUOROURACIL
     Indication: ANAL CANCER
     Dosage: DAYS 1?4, DAYS 28?31 +/?  DAYS 56?59
     Route: 065
  3. CAPECITABINE. [Suspect]
     Active Substance: CAPECITABINE
     Indication: ANAL CANCER
     Dosage: 5 DAYS PER WEEK DURING ALL THE RT TREATMENTS
     Route: 065
  4. MITOMYCIN C [Suspect]
     Active Substance: MITOMYCIN
     Indication: ANAL CANCER
     Dosage: DAY 1, DAY 28 +/? DAY 56
     Route: 065

REACTIONS (3)
  - Skin toxicity [Unknown]
  - Gastrointestinal toxicity [Unknown]
  - Urinary tract toxicity [Unknown]
